FAERS Safety Report 4328650-1 (Version None)
Quarter: 2004Q2

REPORT INFORMATION
  Report Type: 
  Country: None (occurrence: None)
  Receive Date: 20040401
  Receipt Date: 20040223
  Transmission Date: 20050107
  Serious: Yes (Hospitalization, Other)
  Sender: FDA-Public Use
  Company Number: PHBS2004JP02555

PATIENT
  Age: 78 Year
  Sex: Male
  Weight: 45 kg

DRUGS (8)
  1. DIOVAN [Suspect]
     Indication: HYPERTENSION
     Dosage: 40 MG, QD
     Route: 048
     Dates: start: 20040119, end: 20040219
  2. LASIX [Concomitant]
     Indication: HYPERTENSION
     Dosage: 20 MG, UNK
     Route: 048
     Dates: start: 20010101
  3. ESTAZOLAM [Concomitant]
     Indication: HYPERTENSION
     Dosage: 1 MG, UNK
     Route: 048
     Dates: start: 20010101
  4. BUFFERIN [Concomitant]
     Indication: AGE INDETERMINATE MYOCARDIAL INFARCTION
     Dosage: 81 MG, UNK
     Route: 048
     Dates: start: 20010101
  5. ITOROL [Concomitant]
     Indication: MYOCARDIAL INFARCTION
     Dosage: 2 DF, UNK
     Route: 048
     Dates: start: 20010101
  6. TICPILONE [Concomitant]
     Indication: MYOCARDIAL INFARCTION
     Dosage: 2 DF, UNK
     Route: 048
     Dates: start: 20010101
  7. LOXONIN [Concomitant]
     Indication: BACK PAIN
     Dosage: 3 DF, UNK
     Route: 048
     Dates: start: 20020101
  8. MUCOSTA [Concomitant]
     Indication: BACK PAIN
     Dosage: 3 DF, UNK
     Dates: start: 20020101

REACTIONS (6)
  - C-REACTIVE PROTEIN INCREASED [None]
  - CHEST X-RAY ABNORMAL [None]
  - COUGH [None]
  - INTERSTITIAL LUNG DISEASE [None]
  - LYMPHADENOPATHY [None]
  - WHEEZING [None]
